FAERS Safety Report 12707654 (Version 1)
Quarter: 2016Q3

REPORT INFORMATION
  Report Type: Report from Study
  Country: JP (occurrence: JP)
  Receive Date: 20160901
  Receipt Date: 20160901
  Transmission Date: 20161109
  Serious: Yes (Life-Threatening, Other)
  Sender: FDA-Public Use
  Company Number: JP-REGENERON PHARMACEUTICALS, INC.-2015-10976

PATIENT

DRUGS (6)
  1. BENOXIL [Concomitant]
     Active Substance: BENOXINATE HYDROCHLORIDE
     Indication: ANAESTHESIA PROCEDURE
     Dosage: UNK
     Route: 047
     Dates: start: 20130610
  2. EYLEA [Suspect]
     Active Substance: AFLIBERCEPT
     Indication: CHOROIDAL NEOVASCULARISATION
  3. EYLEA [Suspect]
     Active Substance: AFLIBERCEPT
     Indication: NEOVASCULAR AGE-RELATED MACULAR DEGENERATION
     Dosage: 2 MG MILLIGRAM(S), ONCE
     Route: 031
     Dates: start: 20130610, end: 20130610
  4. POVIDONE-IODINE. [Concomitant]
     Active Substance: POVIDONE-IODINE
     Indication: INFECTION PROPHYLAXIS
     Dosage: UNK
     Route: 047
     Dates: start: 20130610
  5. DROSYN-T [Concomitant]
     Indication: MYDRIASIS
     Dosage: UNK
     Route: 047
     Dates: start: 20130610
  6. CRAVIT [Concomitant]
     Active Substance: LEVOFLOXACIN
     Indication: INFECTION PROPHYLAXIS
     Dosage: DAILY DOSE 4 GTT
     Route: 047
     Dates: start: 20130610

REACTIONS (2)
  - Peripheral paralysis [Recovered/Resolved]
  - Peripheral nerve palsy [Recovered/Resolved]

NARRATIVE: CASE EVENT DATE: 20130612
